FAERS Safety Report 7435722-1 (Version None)
Quarter: 2011Q2

REPORT INFORMATION
  Report Type: 
  Country: None (occurrence: None)
  Receive Date: 20110425
  Receipt Date: 20110414
  Transmission Date: 20111010
  Serious: Yes (Hospitalization, Other)
  Sender: FDA-Public Use
  Company Number: US-ELI_LILLY_AND_COMPANY-US201104005086

PATIENT

DRUGS (7)
  1. EVISTA [Suspect]
     Indication: OSTEOPOROSIS
     Dosage: 60 MG, QD
     Dates: start: 20030901, end: 20110413
  2. ALBUTEROL [Concomitant]
     Dosage: 1 DF, BID
     Route: 055
  3. LIPITOR [Concomitant]
     Dosage: 1 DF, UNK
  4. CULTURELLE [Concomitant]
     Dosage: 1 DF, UNK
  5. VITAMIN D [Concomitant]
     Dosage: 400 IU, UNK
  6. ASPIRIN [Concomitant]
     Dosage: 325 MG, QD
  7. VITAMIN B-12 [Concomitant]
     Dosage: 1 DF, MONTHLY (1/M)

REACTIONS (9)
  - PULMONARY EMBOLISM [None]
  - SARCOIDOSIS [None]
  - FIBROSIS [None]
  - HAEMOPTYSIS [None]
  - LUNG DISORDER [None]
  - PULMONARY GRANULOMA [None]
  - OBSTRUCTION [None]
  - MYCOBACTERIUM AVIUM COMPLEX INFECTION [None]
  - BACTERIAL INFECTION [None]
